FAERS Safety Report 5627944-7 (Version None)
Quarter: 2008Q1

REPORT INFORMATION
  Report Type: 
  Country: None (occurrence: None)
  Receive Date: 20080215
  Receipt Date: 20080204
  Transmission Date: 20080703
  Serious: Yes (Other)
  Sender: FDA-Public Use
  Company Number: ES-GILEAD-2008-0015308

PATIENT

DRUGS (2)
  1. VIREAD [Suspect]
     Indication: HIV INFECTION
     Route: 048
  2. TRIZIVIR [Concomitant]
     Indication: HIV INFECTION

REACTIONS (1)
  - DRUG RESISTANCE [None]
